FAERS Safety Report 6032222-0 (Version None)
Quarter: 2009Q1

REPORT INFORMATION
  Report Type: 
  Country: None (occurrence: None)
  Receive Date: 20090108
  Receipt Date: 20090106
  Transmission Date: 20090719
  Serious: No
  Sender: FDA-Public Use
  Company Number: US-B.I. PHARMACEUTICALS,INC./RIDGEFIELD-2009-BP-00151BP

PATIENT
  Age: 73 Year
  Sex: Male

DRUGS (7)
  1. FLOMAX [Suspect]
     Indication: BENIGN PROSTATIC HYPERPLASIA
     Dosage: .4MG
     Route: 048
     Dates: start: 20070101, end: 20080101
  2. FLOMAX [Suspect]
     Dosage: .8MG
     Route: 048
     Dates: start: 20080101
  3. CALCITRIOL [Concomitant]
     Indication: NEPHRECTOMY
     Route: 048
  4. CADUET [Concomitant]
     Indication: HYPERTENSION
  5. BENAZEPRIL HYDROCHLORIDE [Concomitant]
     Indication: HYPERTENSION
  6. POTASSIUM CHLORIDE [Concomitant]
     Indication: HYPERTENSION
  7. ASPIRIN [Concomitant]
     Indication: CARDIAC DISORDER

REACTIONS (1)
  - NOCTURIA [None]
